FAERS Safety Report 6865408-3 (Version None)
Quarter: 2010Q3

REPORT INFORMATION
  Report Type: 
  Country: None (occurrence: None)
  Receive Date: 20100721
  Receipt Date: 20080421
  Transmission Date: 20110219
  Serious: No
  Sender: FDA-Public Use
  Company Number: US-PFIZER INC-2008035796

PATIENT
  Sex: Male
  Weight: 108.9 kg

DRUGS (1)
  1. CHANTIX [Suspect]
     Indication: EX-TOBACCO USER
     Dates: start: 20080326, end: 20080401

REACTIONS (10)
  - ABNORMAL DREAMS [None]
  - ANGER [None]
  - COLD SWEAT [None]
  - DEPRESSION [None]
  - DIZZINESS [None]
  - HOSTILITY [None]
  - HOT FLUSH [None]
  - INSOMNIA [None]
  - MYALGIA [None]
  - NAUSEA [None]
